FAERS Safety Report 21930200 (Version 1)
Quarter: 2023Q1

REPORT INFORMATION
  Report Type: Spontaneous
  Country: US (occurrence: None)
  Receive Date: 20230130
  Receipt Date: 20230130
  Transmission Date: 20230417
  Serious: Yes (Hospitalization)
  Sender: FDA-Public Use
  Company Number: None

PATIENT
  Age: 70 Year
  Sex: Male
  Weight: 91 kg

DRUGS (2)
  1. LISINOPRIL [Suspect]
     Active Substance: LISINOPRIL
     Indication: Hypertension
     Dosage: 1 TAB AM PO?
     Route: 048
     Dates: start: 20220715, end: 20230111
  2. BUPROPION HYDROCHLORIDE [Suspect]
     Active Substance: BUPROPION HYDROCHLORIDE
     Indication: Depression
     Dosage: 1 TAB AM PO?
     Route: 048
     Dates: start: 20230110

REACTIONS (4)
  - Angioedema [None]
  - Pharyngeal swelling [None]
  - Dysphonia [None]
  - Obstructive airways disorder [None]

NARRATIVE: CASE EVENT DATE: 20230111
